FAERS Safety Report 13261993 (Version 1)
Quarter: 2017Q1

REPORT INFORMATION
  Report Type: Spontaneous
  Country: US (occurrence: US)
  Receive Date: 20170222
  Receipt Date: 20170222
  Transmission Date: 20170428
  Serious: No
  Sender: FDA-Public Use
  Company Number: US-009507513-1702USA000287

PATIENT
  Sex: Female

DRUGS (1)
  1. ASMANEX [Suspect]
     Active Substance: MOMETASONE FUROATE
     Indication: ASTHMA
     Dosage: UNK, TWICE DAILY AM/PM
     Route: 055

REACTIONS (4)
  - Product quality issue [Unknown]
  - Chest pain [Recovering/Resolving]
  - Cough [Recovering/Resolving]
  - Underdose [Unknown]
